FAERS Safety Report 7575077-5 (Version None)
Quarter: 2011Q2

REPORT INFORMATION
  Report Type: 
  Country: None (occurrence: None)
  Receive Date: 20110627
  Receipt Date: 20110623
  Transmission Date: 20111010
  Serious: Yes (Life-Threatening, Hospitalization)
  Sender: FDA-Public Use
  Company Number: PHHO2011US04447

PATIENT
  Sex: Female
  Weight: 91 kg

DRUGS (16)
  1. CERTICAN [Suspect]
     Dosage: 0.25 MG, BID
     Route: 048
     Dates: start: 20110224, end: 20110224
  2. TACROLIMUS [Concomitant]
     Indication: RENAL TRANSPLANT
     Dosage: 5 MG, BID
     Route: 048
     Dates: start: 20110223, end: 20110224
  3. DULOXETIME HYDROCHLORIDE [Concomitant]
     Indication: NEUROPATHY PERIPHERAL
  4. TACROLIMUS [Concomitant]
     Dosage: 3 MG, BID
     Route: 048
     Dates: start: 20110224, end: 20110304
  5. VALCYTE [Concomitant]
     Indication: ANTIVIRAL PROPHYLAXIS
  6. TRAZODONE HCL [Suspect]
  7. ASPIRIN [Concomitant]
     Indication: CARDIOVASCULAR EVENT PROPHYLAXIS
  8. ZOCOR [Concomitant]
     Indication: HYPERCHOLESTEROLAEMIA
  9. PEPCID [Concomitant]
     Indication: GASTROOESOPHAGEAL REFLUX DISEASE
  10. TACROLIMUS [Concomitant]
     Dosage: 2 MG, BID
     Route: 048
     Dates: start: 20110304
  11. CERTICAN [Suspect]
     Dosage: 0.75 MG, BID
     Route: 048
     Dates: start: 20110303, end: 20110307
  12. CERTICAN [Suspect]
     Dosage: 0.25 MG, BID
     Route: 048
     Dates: start: 20110227, end: 20110303
  13. POTASSIUM CHLORIDE [Suspect]
  14. PREDNISONE [Concomitant]
     Indication: RENAL TRANSPLANT
     Dosage: 5 MG, UNK
     Route: 048
     Dates: start: 20110224
  15. PLAVIX [Concomitant]
     Indication: CARDIOVASCULAR EVENT PROPHYLAXIS
  16. CERTICAN [Suspect]
     Indication: RENAL TRANSPLANT
     Dosage: 0.75 MG, BID
     Route: 048
     Dates: start: 20110220, end: 20110224

REACTIONS (13)
  - HYPERKALAEMIA [None]
  - DRUG DOSE OMISSION [None]
  - RESPIRATORY DISTRESS [None]
  - INCORRECT DOSE ADMINISTERED [None]
  - CONSTIPATION [None]
  - TRANSPLANT REJECTION [None]
  - DIARRHOEA [None]
  - DRUG ADMINISTRATION ERROR [None]
  - MENTAL STATUS CHANGES [None]
  - FATIGUE [None]
  - TREATMENT NONCOMPLIANCE [None]
  - ELECTROCARDIOGRAM ABNORMAL [None]
  - FALL [None]
